FAERS Safety Report 7151551-0 (Version None)
Quarter: 2010Q4

REPORT INFORMATION
  Report Type: 
  Country: None (occurrence: None)
  Receive Date: 20101210
  Receipt Date: 20101201
  Transmission Date: 20110411
  Serious: Yes (Hospitalization, Other)
  Sender: FDA-Public Use
  Company Number: US-ABBOTT-10P-163-0689212-00

PATIENT
  Sex: Female

DRUGS (1)
  1. HUMIRA [Suspect]
     Indication: RHEUMATOID ARTHRITIS
     Route: 058
     Dates: start: 20090129, end: 20100610

REACTIONS (4)
  - CORONARY ARTERY OCCLUSION [None]
  - HEADACHE [None]
  - OEDEMA PERIPHERAL [None]
  - SKIN ULCER [None]
